FAERS Safety Report 11398630 (Version 1)
Quarter: 2015Q3

REPORT INFORMATION
  Report Type: Spontaneous
  Country: US (occurrence: None)
  Receive Date: 20150818
  Receipt Date: 20150818
  Transmission Date: 20151125
  Serious: Yes (Life-Threatening, Hospitalization)
  Sender: FDA-Public Use
  Company Number: None

PATIENT

DRUGS (1)
  1. GILENYA [Suspect]
     Active Substance: FINGOLIMOD HYDROCHLORIDE

REACTIONS (5)
  - Spinal column injury [None]
  - Headache [None]
  - Immune system disorder [None]
  - Neck pain [None]
  - Cryptococcus test positive [None]

NARRATIVE: CASE EVENT DATE: 20150617
